FAERS Safety Report 24852452 (Version 1)
Quarter: 2025Q1

REPORT INFORMATION
  Report Type: Spontaneous
  Country: US (occurrence: US)
  Receive Date: 20250116
  Receipt Date: 20250116
  Transmission Date: 20250409
  Serious: Yes (Other)
  Sender: PFIZER
  Company Number: US-PFIZER INC-PV202500005995

PATIENT
  Age: 69 Year
  Sex: Female

DRUGS (1)
  1. RIFABUTIN [Suspect]
     Active Substance: RIFABUTIN

REACTIONS (3)
  - Mycobacterium avium complex infection [Unknown]
  - Disease recurrence [Unknown]
  - Drug hypersensitivity [Unknown]
